FAERS Safety Report 4764639-6 (Version None)
Quarter: 2005Q3

REPORT INFORMATION
  Report Type: 
  Country: None (occurrence: None)
  Receive Date: 20050909
  Receipt Date: 20050113
  Transmission Date: 20060218
  Serious: Yes (Hospitalization)
  Sender: FDA-Public Use
  Company Number: FR-GLAXOSMITHKLINE-B0364541B

PATIENT
  Sex: Male

DRUGS (9)
  1. RETROVIR [Suspect]
     Indication: ANTIVIRAL PROPHYLAXIS
     Route: 048
  2. RETROVIR [Suspect]
  3. EPIVIR [Suspect]
     Indication: HIV INFECTION
  4. VIRACEPT [Suspect]
     Indication: HIV INFECTION
  5. ZOVIRAX [Concomitant]
     Route: 065
  6. CLAFORAN [Concomitant]
     Route: 065
  7. FLAGYL [Concomitant]
     Route: 065
  8. LOXEN [Concomitant]
  9. CELESTENE [Concomitant]

REACTIONS (9)
  - AMNIOCENTESIS ABNORMAL [None]
  - APNOEA [None]
  - DRUG EXPOSURE DURING PREGNANCY [None]
  - DRUG LEVEL INCREASED [None]
  - FOETAL DISTRESS SYNDROME [None]
  - FOETAL HEART RATE ABNORMAL [None]
  - MALAISE [None]
  - PREMATURE BABY [None]
  - RESPIRATORY DISTRESS [None]
